FAERS Safety Report 25034473 (Version 2)
Quarter: 2025Q2

REPORT INFORMATION
  Report Type: Report from Study
  Country: GB (occurrence: GB)
  Receive Date: 20250304
  Receipt Date: 20250424
  Transmission Date: 20250716
  Serious: Yes (Hospitalization, Other)
  Sender: AMGEN
  Company Number: GB-AMGEN-GBRSL2025038375

PATIENT
  Sex: Female

DRUGS (1)
  1. ADALIMUMAB [Suspect]
     Active Substance: ADALIMUMAB
     Indication: Iridocyclitis
     Dosage: 40 MILLIGRAM, Q2WK
     Route: 065
     Dates: start: 20250213

REACTIONS (6)
  - Eye disorder [Unknown]
  - Nasal abscess [Unknown]
  - Herpes zoster [Unknown]
  - Toothache [Unknown]
  - Rash [Unknown]
  - Headache [Unknown]
